FAERS Safety Report 9292928 (Version 2)
Quarter: 2013Q2

REPORT INFORMATION
  Report Type: Spontaneous
  Country: US (occurrence: US)
  Receive Date: 20130516
  Receipt Date: 20130610
  Transmission Date: 20140414
  Serious: Yes (Disabling, Other)
  Sender: FDA-Public Use
  Company Number: US-PFIZER INC-2013150851

PATIENT
  Age: 34 Year
  Sex: Male
  Weight: 124.72 kg

DRUGS (7)
  1. DILANTIN-125 [Suspect]
     Indication: CONVULSION
     Dosage: 100 MG TWO IN THE MORNING, 100 MG TWO AT LUNCH AND 100 MG THREE AT THE BED TIME
  2. DILANTIN-125 [Suspect]
     Dosage: 700 MG
  3. IBUPROFEN [Concomitant]
     Indication: ARTHROPATHY
     Dosage: 800 MG, 2X/DAY
     Route: 048
  4. IBUPROFEN [Concomitant]
     Dosage: 800 MG, AS NEEDED
     Route: 048
  5. RISPERDAL M-TAB [Concomitant]
     Indication: ANXIETY
     Dosage: 4 MG, 1/2-2 TABS AT BEDTIME
     Route: 048
  6. MAGNESIUM OXIDE [Concomitant]
     Dosage: 400 MG, 3X/DAY
     Route: 048
  7. DIAZEPAM [Concomitant]
     Dosage: 5 MG, 3X/DAY
     Route: 048

REACTIONS (12)
  - Drug ineffective [Recovered/Resolved]
  - Convulsion [Recovered/Resolved]
  - Weight increased [Unknown]
  - Snoring [Unknown]
  - Arthralgia [Unknown]
  - Dizziness [Unknown]
  - Amnesia [Unknown]
  - Asthenia [Unknown]
  - Paraesthesia [Unknown]
  - Depression [Unknown]
  - Anxiety [Unknown]
  - Headache [Unknown]
